FAERS Safety Report 24085846 (Version 4)
Quarter: 2025Q2

REPORT INFORMATION
  Report Type: Spontaneous
  Country: CA (occurrence: CA)
  Receive Date: 20240712
  Receipt Date: 20250421
  Transmission Date: 20250716
  Serious: Yes (Other)
  Sender: PFIZER
  Company Number: CA-PFIZER INC-202400212443

PATIENT
  Age: 34 Year
  Sex: Female

DRUGS (6)
  1. XELJANZ [Suspect]
     Active Substance: TOFACITINIB CITRATE
     Indication: Colitis ulcerative
     Dosage: 5 MG, 2X/DAY
     Route: 048
     Dates: start: 2021
  2. XELJANZ [Suspect]
     Active Substance: TOFACITINIB CITRATE
     Dosage: 10 MG, 2X/DAY
     Route: 048
  3. XELJANZ [Suspect]
     Active Substance: TOFACITINIB CITRATE
     Dosage: 5 MG, 2X/DAY
     Route: 048
  4. MESALAMINE [Concomitant]
     Active Substance: MESALAMINE
     Dosage: 2 G, 2X/DAY
  5. PREDNISONE [Concomitant]
     Active Substance: PREDNISONE
     Dates: start: 202307
  6. VITAMINS [Concomitant]
     Active Substance: VITAMINS

REACTIONS (12)
  - Large intestinal ulcer [Unknown]
  - Thrombosis [Unknown]
  - Haematochezia [Unknown]
  - Erythema [Unknown]
  - Dizziness [Unknown]
  - Hypertension [Unknown]
  - Constipation [Unknown]
  - Weight increased [Unknown]
  - Abdominal distension [Unknown]
  - White blood cell count increased [Unknown]
  - Herpes zoster [Unknown]
  - Anal fissure [Recovered/Resolved]

NARRATIVE: CASE EVENT DATE: 20230801
